FAERS Safety Report 6419093-5 (Version None)
Quarter: 2009Q4

REPORT INFORMATION
  Report Type: 
  Country: None (occurrence: None)
  Receive Date: 20091028
  Receipt Date: 20091028
  Transmission Date: 20100525
  Serious: Yes (Hospitalization)
  Sender: FDA-Public Use
  Company Number: None

PATIENT
  Sex: Female
  Weight: 78.4723 kg

DRUGS (3)
  1. DAYPRO [Suspect]
     Indication: ARTHRALGIA
     Dosage: 1200 MG DAILY
  2. LIDODERM PATCH FOR 12 HOURS NIGHTLY [Concomitant]
  3. AVAPRO [Concomitant]

REACTIONS (4)
  - ANAPHYLACTIC REACTION [None]
  - ERYTHEMA [None]
  - PHARYNGEAL OEDEMA [None]
  - PRURITUS [None]
